FAERS Safety Report 5486402-3 (Version None)
Quarter: 2007Q4

REPORT INFORMATION
  Report Type: 
  Country: None (occurrence: None)
  Receive Date: 20071016
  Receipt Date: 20071010
  Transmission Date: 20080405
  Serious: Yes (Hospitalization)
  Sender: FDA-Public Use
  Company Number: DE-JNJFOC-20071002263

PATIENT
  Sex: Female

DRUGS (1)
  1. INVEGA [Suspect]
     Indication: MANIA
     Route: 048

REACTIONS (1)
  - MANIA [None]
